FAERS Safety Report 21639144 (Version 1)
Quarter: 2022Q4

REPORT INFORMATION
  Report Type: Report from Study
  Country: CA (occurrence: CA)
  Receive Date: 20221124
  Receipt Date: 20221124
  Transmission Date: 20230113
  Serious: Yes (Hospitalization)
  Sender: FDA-Public Use
  Company Number: CA-HLS-202202049

PATIENT
  Sex: Male

DRUGS (1)
  1. CLOZARIL [Suspect]
     Active Substance: CLOZAPINE
     Indication: Product used for unknown indication
     Dosage: PATIENT UNABLE TO TOLERATE DOSE }62.5MG PER DAY
     Route: 048
     Dates: start: 20220909, end: 20221028

REACTIONS (3)
  - C-reactive protein increased [Unknown]
  - Orthostatic hypotension [Unknown]
  - Tachycardia [Unknown]
